FAERS Safety Report 15217186 (Version 1)
Quarter: 2018Q3

REPORT INFORMATION
  Report Type: Spontaneous
  Country: US (occurrence: US)
  Receive Date: 20180727
  Receipt Date: 20180727
  Transmission Date: 20181010
  Serious: No
  Sender: FDA-Public Use
  Company Number: None

PATIENT
  Age: 58 Year
  Sex: Male
  Weight: 70.65 kg

DRUGS (2)
  1. MEROPENEM FOR INJECTION [Suspect]
     Active Substance: MEROPENEM
     Indication: OSTEOMYELITIS
     Route: 041
  2. MEROPENEM FOR INJECTION [Suspect]
     Active Substance: MEROPENEM
     Indication: OSTEOMYELITIS
     Route: 041

REACTIONS (4)
  - Liquid product physical issue [None]
  - Product compounding quality issue [None]
  - Product quality issue [None]
  - Product colour issue [None]

NARRATIVE: CASE EVENT DATE: 20180716
